FAERS Safety Report 13397975 (Version 2)
Quarter: 2017Q3

REPORT INFORMATION
  Report Type: Report from Study
  Country: NL (occurrence: NL)
  Receive Date: 20170403
  Receipt Date: 20170801
  Transmission Date: 20171127
  Serious: Yes (Other)
  Sender: FDA-Public Use
  Company Number: NL-DSJP-DSE-2017-110057

PATIENT

DRUGS (2)
  1. ORAL ANTIDIABETICS [Concomitant]
     Active Substance: UNSPECIFIED INGREDIENT
     Indication: DIABETES MELLITUS
  2. EDOXABAN [Suspect]
     Active Substance: EDOXABAN TOSYLATE
     Indication: ATRIAL FIBRILLATION
     Dosage: 60 MG, QD
     Route: 048
     Dates: start: 20170214, end: 20170314

REACTIONS (2)
  - Fatigue [Recovered/Resolved with Sequelae]
  - Weight decreased [Recovered/Resolved]

NARRATIVE: CASE EVENT DATE: 20170222
